FAERS Safety Report 25981592 (Version 1)
Quarter: 2025Q4

REPORT INFORMATION
  Report Type: Spontaneous
  Country: CA (occurrence: CA)
  Receive Date: 20251030
  Receipt Date: 20251030
  Transmission Date: 20260118
  Serious: Yes (Other)
  Sender: Haleon PLC
  Company Number: CA-HALEON-2270835

PATIENT
  Age: 72 Year
  Sex: Male

DRUGS (2)
  1. FLONASE ALLERGY RELIEF [Suspect]
     Active Substance: FLUTICASONE PROPIONATE
     Indication: Chronic obstructive pulmonary disease
     Dosage: ROUTE: UNKNOWN
  2. COBICISTAT [Suspect]
     Active Substance: COBICISTAT
     Indication: Product used for unknown indication
     Dosage: ROUTE: UNKNOWN

REACTIONS (3)
  - Adrenal insufficiency [Unknown]
  - Drug interaction [Unknown]
  - Orthostatic hypotension [Unknown]
